FAERS Safety Report 8923607 (Version 4)
Quarter: 2012Q4

REPORT INFORMATION
  Report Type: Report from Study
  Country: AR (occurrence: AR)
  Receive Date: 20121123
  Receipt Date: 20121221
  Transmission Date: 20130627
  Serious: Yes (Death, Hospitalization)
  Sender: FDA-Public Use
  Company Number: PHHO2012AR016454

PATIENT
  Age: 68 Year
  Sex: Male
  Weight: 57 kg

DRUGS (3)
  1. AFINITOR [Suspect]
     Indication: METASTATIC RENAL CELL CARCINOMA
     Dosage: 5 mg, BID
     Route: 048
     Dates: start: 20121004, end: 20121116
  2. LOSARTAN [Concomitant]
     Indication: HYPERTENSION
     Dosage: 50 mg, QD
  3. LEVODOPA W/BENSERAZIDE [Concomitant]
     Indication: PARKINSON^S DISEASE
     Dosage: UNK

REACTIONS (2)
  - Respiratory failure [Fatal]
  - Disorientation [Fatal]
